FAERS Safety Report 5577841-0 (Version None)
Quarter: 2007Q4

REPORT INFORMATION
  Report Type: 
  Country: None (occurrence: None)
  Receive Date: 20071227
  Receipt Date: 20071218
  Transmission Date: 20080405
  Serious: Yes (Death, Hospitalization)
  Sender: FDA-Public Use
  Company Number: 163-20785-07110725

PATIENT
  Age: 70 Year
  Sex: Male

DRUGS (4)
  1. THALOMID [Suspect]
     Indication: MULTIPLE MYELOMA
     Dosage: 200 MG, QD, ORAL; 50-100 MG, QD, ORAL
     Route: 048
     Dates: start: 20060301, end: 20061101
  2. THALOMID [Suspect]
     Indication: MULTIPLE MYELOMA
     Dosage: 200 MG, QD, ORAL; 50-100 MG, QD, ORAL
     Route: 048
     Dates: start: 20061108, end: 20071104
  3. DARBEPOETIN (DARBEPOETIN ALFA) [Concomitant]
  4. ASPIRIN [Concomitant]

REACTIONS (2)
  - PNEUMONIA [None]
  - RESPIRATORY FAILURE [None]
